FAERS Safety Report 5514877-X (Version None)
Quarter: 2007Q4

REPORT INFORMATION
  Report Type: 
  Country: None (occurrence: None)
  Receive Date: 20071113
  Receipt Date: 20060915
  Transmission Date: 20080405
  Serious: No
  Sender: FDA-Public Use
  Company Number: A0620332A

PATIENT
  Age: 74 Year
  Sex: Female

DRUGS (14)
  1. COREG [Suspect]
     Dosage: 6.25MG TWICE PER DAY
     Route: 048
  2. NITROQUICK [Concomitant]
  3. KEFLEX [Concomitant]
  4. ESTROPIPATE [Concomitant]
  5. METFORMIN HCL [Concomitant]
  6. TRIAMTERENE [Concomitant]
  7. ASPIRIN [Concomitant]
  8. THYROID TAB [Concomitant]
  9. GLUCOSAMINE CHONDROITIN [Concomitant]
  10. CRESTOR [Concomitant]
  11. VITAMIN E [Concomitant]
  12. FLAXSEED OIL [Concomitant]
  13. CITRACAL [Concomitant]
  14. ALPRAZOLAM [Concomitant]

REACTIONS (2)
  - HEART RATE INCREASED [None]
  - INSOMNIA [None]
